FAERS Safety Report 7047793-5 (Version None)
Quarter: 2010Q4

REPORT INFORMATION
  Report Type: 
  Country: None (occurrence: None)
  Receive Date: 20101015
  Receipt Date: 20101004
  Transmission Date: 20110411
  Serious: Yes (Other)
  Sender: FDA-Public Use
  Company Number: US-PFIZER INC-2010123255

PATIENT
  Sex: Male
  Weight: 92.063 kg

DRUGS (9)
  1. ZOLOFT [Suspect]
     Indication: ANXIETY
     Dosage: 25 MG, DAILY
     Dates: start: 20100919
  2. ZOLOFT [Suspect]
     Dosage: 50 MG, DAILY
     Route: 048
     Dates: end: 20100930
  3. XANAX [Concomitant]
     Dosage: 0.25 MG, 3X/DAY
     Route: 048
     Dates: start: 20100901
  4. LIPITOR [Concomitant]
     Indication: BLOOD CHOLESTEROL ABNORMAL
     Dosage: 80 MG, DAILY
     Route: 048
  5. ACETYLSALICYLIC ACID [Concomitant]
     Dosage: 81 MG, 3X/WEEK
     Route: 048
  6. VITAMIN D [Concomitant]
     Dosage: 400 IU, 3X/DAY
     Route: 048
  7. CENTRUM SILVER [Concomitant]
     Dosage: UNK
  8. HYDROCHLOROTHIAZIDE [Concomitant]
     Indication: BLOOD PRESSURE ABNORMAL
     Dosage: 12.5 MG, DAILY
  9. LEXAPRO [Concomitant]
     Dosage: 10 MG, AS NEEDED
     Route: 048

REACTIONS (10)
  - ANXIETY [None]
  - BLOOD PRESSURE ABNORMAL [None]
  - BLOOD PRESSURE INCREASED [None]
  - FEELING ABNORMAL [None]
  - FEELING OF RELAXATION [None]
  - HEART RATE ABNORMAL [None]
  - HEART RATE INCREASED [None]
  - PALPITATIONS [None]
  - PANIC ATTACK [None]
  - SUICIDAL IDEATION [None]
